FAERS Safety Report 12526672 (Version 3)
Quarter: 2016Q3

REPORT INFORMATION
  Report Type: Spontaneous
  Country: US (occurrence: US)
  Receive Date: 20160705
  Receipt Date: 20160725
  Transmission Date: 20161109
  Serious: Yes (Death, Hospitalization)
  Sender: FDA-Public Use
  Company Number: US-UNITED THERAPEUTICS-UNT-2016-009730

PATIENT
  Age: 70 Year
  Sex: Female
  Weight: 90.25 kg

DRUGS (1)
  1. REMODULIN [Suspect]
     Active Substance: TREPROSTINIL
     Indication: PULMONARY ARTERIAL HYPERTENSION
     Dosage: 0.054 ?G/KG, CONTINUING
     Route: 041
     Dates: start: 20090305, end: 20160701

REACTIONS (4)
  - Back pain [Unknown]
  - Asthenia [Fatal]
  - Fluid retention [Unknown]
  - Fall [Fatal]

NARRATIVE: CASE EVENT DATE: 201606
